FAERS Safety Report 23357934 (Version 2)
Quarter: 2024Q1

REPORT INFORMATION
  Report Type: Spontaneous
  Country: JP (occurrence: JP)
  Receive Date: 20240102
  Receipt Date: 20240122
  Transmission Date: 20240410
  Serious: Yes (Hospitalization, Other)
  Sender: FDA-Public Use
  Company Number: JP-PFIZER INC-PV202300206754

PATIENT
  Age: 68 Year
  Sex: Female
  Weight: 80.3 kg

DRUGS (5)
  1. AZULFIDINE EN-TABS [Suspect]
     Active Substance: SULFASALAZINE
     Indication: Rheumatoid arthritis
     Dosage: 500 MG, DAILY
     Route: 048
     Dates: start: 20230705, end: 20230719
  2. AMLODIPINE [Concomitant]
     Active Substance: AMLODIPINE BESYLATE
     Dosage: UNK
     Route: 048
     Dates: end: 20230719
  3. AMLODIPINE BESYLATE\AZILSARTAN [Concomitant]
     Active Substance: AMLODIPINE BESYLATE\AZILSARTAN
     Dosage: UNK
     Route: 048
     Dates: end: 20230719
  4. LANSOPRAZOLE [Concomitant]
     Active Substance: LANSOPRAZOLE
     Dosage: UNK
     Route: 048
     Dates: end: 20230719
  5. CELECOXIB [Concomitant]
     Active Substance: CELECOXIB
     Dosage: UNK
     Route: 048
     Dates: end: 20230719

REACTIONS (3)
  - Toxic epidermal necrolysis [Not Recovered/Not Resolved]
  - Cerebral haemorrhage [Unknown]
  - Postoperative wound infection [Not Recovered/Not Resolved]

NARRATIVE: CASE EVENT DATE: 20230719
